FAERS Safety Report 18681206 (Version 3)
Quarter: 2021Q1

REPORT INFORMATION
  Report Type: Spontaneous
  Country: US (occurrence: US)
  Receive Date: 20201230
  Receipt Date: 20210121
  Transmission Date: 20210419
  Serious: No
  Sender: FDA-Public Use
  Company Number: US-SA-2020SA374731

PATIENT
  Age: 54 Year
  Sex: Female

DRUGS (1)
  1. LANTUS SOLOSTAR [Suspect]
     Active Substance: INSULIN GLARGINE
     Dosage: 30 IU, HS
     Route: 065
     Dates: start: 2020

REACTIONS (5)
  - Blood glucose increased [Unknown]
  - Drug dose omission by device [Unknown]
  - Device issue [Unknown]
  - Visual impairment [Unknown]
  - Product quality issue [Unknown]
